FAERS Safety Report 4415661-0 (Version None)
Quarter: 2004Q3

REPORT INFORMATION
  Report Type: 
  Country: None (occurrence: None)
  Receive Date: 20040730
  Receipt Date: 20040726
  Transmission Date: 20050211
  Serious: Yes (Hospitalization, Other)
  Sender: FDA-Public Use
  Company Number: KII-2004-0012510

PATIENT
  Age: 33 Year
  Sex: Male

DRUGS (5)
  1. OXYCONTIN [Suspect]
     Indication: DRUG USE FOR UNKNOWN INDICATION
     Dosage: ORAL
  2. BENZODIAZEPINE (DERIVATIVES) [Suspect]
     Indication: DRUG USE FOR UNKNOWN INDICATION
     Dosage: ORAL
  3. OTHER ANALGESICS AND ANTIPYRETICS () [Suspect]
     Indication: DRUG USE FOR UNKNOWN INDICATION
     Dosage: ORAL
     Route: 048
  4. TETRAHYDROCOANNABINOL (TETRAHYDROCANNABINOL) [Suspect]
     Indication: DRUG USE FOR UNKNOWN INDICATION
  5. ANTIGOUT PREPARATIONS () [Suspect]
     Indication: GOUT

REACTIONS (14)
  - ASPIRATION [None]
  - BLOOD AMYLASE INCREASED [None]
  - BLOOD CREATINE INCREASED [None]
  - BLOOD CREATINE PHOSPHOKINASE MB INCREASED [None]
  - BLOOD PH DECREASED [None]
  - COMA [None]
  - HYPOXIA [None]
  - LIPASE INCREASED [None]
  - MULTIPLE DRUG OVERDOSE [None]
  - PYREXIA [None]
  - RESPIRATORY RATE DECREASED [None]
  - RHONCHI [None]
  - SINUS TACHYCARDIA [None]
  - TOXICOLOGIC TEST ABNORMAL [None]
